FAERS Safety Report 22595490 (Version 3)
Quarter: 2023Q4

REPORT INFORMATION
  Report Type: Spontaneous
  Country: US (occurrence: US)
  Receive Date: 20230613
  Receipt Date: 20231009
  Transmission Date: 20240110
  Serious: Yes (Death, Hospitalization, Other)
  Sender: FDA-Public Use
  Company Number: US-JAZZ PHARMACEUTICALS-2023-US-012624

PATIENT
  Age: 20 Year
  Sex: Male
  Weight: 79 kg

DRUGS (3)
  1. RYLAZE [Suspect]
     Active Substance: ASPARAGINASE ERWINIA CHRYSANTHEMI (RECOMBINANT)-RYWN
     Indication: Acute lymphocytic leukaemia
     Dosage: 50 MILLIGRAM
  2. RYLAZE [Suspect]
     Active Substance: ASPARAGINASE ERWINIA CHRYSANTHEMI (RECOMBINANT)-RYWN
     Dosage: 50 MILLIGRAM THREE TIMES WEEKLY
     Route: 030
     Dates: start: 20221027, end: 20221121
  3. METHOTREXATE [Concomitant]
     Active Substance: METHOTREXATE
     Indication: Acute lymphocytic leukaemia
     Dosage: 386 MILLIGRAM
     Route: 042
     Dates: start: 20221026, end: 20221116

REACTIONS (2)
  - Sepsis [Fatal]
  - Pancreatitis [Unknown]
